FAERS Safety Report 15207796 (Version 1)
Quarter: 2018Q3

REPORT INFORMATION
  Report Type: Spontaneous
  Country: US (occurrence: US)
  Receive Date: 20180727
  Receipt Date: 20180727
  Transmission Date: 20181010
  Serious: No
  Sender: FDA-Public Use
  Company Number: US-ALLERGAN-1804088US

PATIENT
  Sex: Male
  Weight: 90.72 kg

DRUGS (2)
  1. ANDROGEL [Suspect]
     Active Substance: TESTOSTERONE
     Indication: HYPOGONADISM
     Dosage: UNK, 1 PUMP DAILY
     Route: 061
     Dates: start: 201702
  2. ANDRODERM [Suspect]
     Active Substance: TESTOSTERONE
     Indication: PRODUCT USED FOR UNKNOWN INDICATION
     Dosage: UNK
     Route: 061
     Dates: start: 201701

REACTIONS (4)
  - Application site pruritus [Recovered/Resolved]
  - Incorrect dose administered [Unknown]
  - Application site erythema [Recovered/Resolved]
  - Urticaria [Not Recovered/Not Resolved]
